FAERS Safety Report 14675527 (Version 2)
Quarter: 2018Q2

REPORT INFORMATION
  Report Type: Spontaneous
  Country: US (occurrence: US)
  Receive Date: 20180323
  Receipt Date: 20180405
  Transmission Date: 20180711
  Serious: No
  Sender: FDA-Public Use
  Company Number: US-009507513-1803USA010017

PATIENT
  Age: 20 Year
  Sex: Female
  Weight: 64.3 kg

DRUGS (2)
  1. NEXPLANON [Suspect]
     Active Substance: ETONOGESTREL
     Dosage: ROD
     Route: 059
  2. NEXPLANON [Suspect]
     Active Substance: ETONOGESTREL
     Dosage: ROD
     Route: 059

REACTIONS (3)
  - Product quality issue [Unknown]
  - Complication of device insertion [Recovered/Resolved]
  - No adverse event [Unknown]
